FAERS Safety Report 4730841-2 (Version None)
Quarter: 2005Q3

REPORT INFORMATION
  Report Type: 
  Country: None (occurrence: None)
  Receive Date: 20050719
  Receipt Date: 20040929
  Transmission Date: 20060218
  Serious: Yes (Hospitalization)
  Sender: FDA-Public Use
  Company Number: 190289

PATIENT
  Age: 42 Year
  Sex: Female
  Weight: 52.1637 kg

DRUGS (2)
  1. AVONEX [Suspect]
     Indication: MULTIPLE SCLEROSIS
     Dosage: 30 UG;QW;IM
     Route: 030
     Dates: start: 19990101, end: 20030827
  2. AVONEX [Suspect]
     Indication: MULTIPLE SCLEROSIS
     Dosage: 30 UG;QW;IM
     Route: 030
     Dates: start: 20030827, end: 20031212

REACTIONS (8)
  - ANOREXIA [None]
  - DEPRESSION [None]
  - DYSPNOEA [None]
  - HAEMORRHOIDS [None]
  - MULTIPLE SCLEROSIS [None]
  - NERVOUSNESS [None]
  - SINUS DISORDER [None]
  - WEIGHT DECREASED [None]
